FAERS Safety Report 7199382-X (Version None)
Quarter: 2010Q4

REPORT INFORMATION
  Report Type: 
  Country: None (occurrence: None)
  Receive Date: 20101228
  Receipt Date: 20101221
  Transmission Date: 20110411
  Serious: Yes (Life-Threatening, Hospitalization)
  Sender: FDA-Public Use
  Company Number: DE-SANOFI-AVENTIS-200910677DE

PATIENT
  Age: 67 Year
  Sex: Female

DRUGS (15)
  1. FUROSEMIDE [Suspect]
     Dosage: DOSE AS USED: 20MG, 2 IN DAY
     Route: 048
  2. SIMVASTATIN [Interacting]
     Route: 048
     Dates: start: 20070101
  3. METHOTREXATE [Interacting]
     Route: 048
     Dates: start: 20081201
  4. ASPIRIN [Interacting]
     Route: 048
     Dates: start: 20040101, end: 20090103
  5. FALITHROM ^FAHLBERG^ [Interacting]
     Indication: ATRIAL FIBRILLATION
     Dosage: DOSE AS USED: NOT REPORTED
     Route: 048
     Dates: start: 20050101, end: 20090103
  6. PREDNISOLONE [Interacting]
     Dosage: DOSE AS USED: 5MG, 2 IN DAY
     Route: 048
     Dates: start: 20081201
  7. XIPAMIDE [Interacting]
     Route: 048
  8. BISOPROLOL [Concomitant]
     Route: 048
     Dates: start: 20070101
  9. CARMEN [Concomitant]
     Route: 048
  10. FLECAINIDE [Concomitant]
     Indication: ATRIAL FIBRILLATION
     Dosage: DOSE AS USED: 100MG, 2 IN DAY
     Route: 048
     Dates: start: 20070801
  11. INSULIN ACTRAPID HUMAN [Concomitant]
     Indication: TYPE 2 DIABETES MELLITUS
     Dosage: DOSE AS USED: 18-12-8-14 IU
     Route: 058
     Dates: start: 20000101
  12. INSULIN PROTAPHAN HUMAN [Concomitant]
     Indication: TYPE 2 DIABETES MELLITUS
     Route: 058
  13. PENTAERYTHRITOL TETRANITRATE [Concomitant]
     Dosage: DOSE AS USED: 80MG, 3 IN DAY
     Route: 048
     Dates: start: 20040101
  14. RAMIPRIL [Concomitant]
     Route: 048
  15. TRAMAL [Concomitant]
     Dosage: DOSE AS USED: 100MG, 2 IN DAY
     Route: 048

REACTIONS (6)
  - BLOOD PRESSURE DECREASED [None]
  - DRUG INTERACTION [None]
  - GASTRIC ULCER [None]
  - GASTROINTESTINAL ULCER HAEMORRHAGE [None]
  - HYPERGLYCAEMIA [None]
  - MELAENA [None]
